FAERS Safety Report 23795672 (Version 1)
Quarter: 2024Q2

REPORT INFORMATION
  Report Type: Spontaneous
  Country: FR (occurrence: FR)
  Receive Date: 20240429
  Receipt Date: 20240429
  Transmission Date: 20240716
  Serious: Yes (Other)
  Sender: FDA-Public Use
  Company Number: None

PATIENT
  Age: 75 Year
  Sex: Female

DRUGS (2)
  1. ZOLPIDEM [Suspect]
     Active Substance: ZOLPIDEM TARTRATE
     Indication: Sleep disorder therapy
     Dosage: UNK (INCREASE IN DOSES OF ZOLPIDEM FROM 1/DAY TO AT LEAST 2/DAY FOR SOME TIME)
     Route: 048
     Dates: start: 20200208
  2. LORMETAZEPAM [Suspect]
     Active Substance: LORMETAZEPAM
     Indication: Product used for unknown indication
     Dosage: UNK, (CHANGE OF MOLECULES WITH LORMETAZEPAM WHEN SHE DOES NOT HAVE ENOUGH ZOLPIDEM)
     Route: 048

REACTIONS (2)
  - Drug abuse [Not Recovered/Not Resolved]
  - Intentional product misuse [Not Recovered/Not Resolved]

NARRATIVE: CASE EVENT DATE: 20200208
